FAERS Safety Report 7273325-2 (Version None)
Quarter: 2011Q1

REPORT INFORMATION
  Report Type: 
  Country: None (occurrence: None)
  Receive Date: 20110203
  Receipt Date: 20110127
  Transmission Date: 20110831
  Serious: Yes (Other)
  Sender: FDA-Public Use
  Company Number: US-US-EMD SERONO, INC.-7001309

PATIENT
  Sex: Female
  Weight: 64 kg

DRUGS (15)
  1. REBIF [Suspect]
     Indication: RELAPSING-REMITTING MULTIPLE SCLEROSIS
     Route: 058
     Dates: start: 20100212, end: 20101019
  2. TOPAMAX [Concomitant]
  3. LEXAPRO [Concomitant]
     Indication: DEPRESSION
  4. IMITREX [Concomitant]
  5. VITAMIN B-12 [Concomitant]
  6. VITAMIN D [Concomitant]
  7. LISINOPRIL [Concomitant]
  8. BONIVA [Concomitant]
  9. NUVIGIL [Concomitant]
     Indication: FATIGUE
  10. FLONASE [Concomitant]
  11. NIACIN [Concomitant]
  12. FIORINAL NO. 3 [Concomitant]
  13. REBIF [Suspect]
     Route: 058
  14. CALCIUM WITH VITAMIN D [Concomitant]
  15. NEXIUM [Concomitant]

REACTIONS (3)
  - MEMORY IMPAIRMENT [None]
  - INJECTION SITE PAIN [None]
  - POSTMENOPAUSAL HAEMORRHAGE [None]
